FAERS Safety Report 8397005-5 (Version None)
Quarter: 2012Q2

REPORT INFORMATION
  Report Type: 
  Country: None (occurrence: None)
  Receive Date: 20120530
  Receipt Date: 20120521
  Transmission Date: 20120825
  Serious: Yes (Hospitalization)
  Sender: FDA-Public Use
  Company Number: NL-BAXTER-2012BAX006840

PATIENT
  Age: 87 Year
  Sex: Female

DRUGS (3)
  1. EXTRANEAL [Suspect]
     Route: 033
     Dates: start: 20050818
  2. VITAMIN D                          /00318501/ [Concomitant]
     Route: 065
  3. EPOGEN [Concomitant]
     Route: 065

REACTIONS (2)
  - SCAPULA FRACTURE [None]
  - RIB FRACTURE [None]
